FAERS Safety Report 10088892 (Version 1)
Quarter: 2014Q2

REPORT INFORMATION
  Report Type: Report from Study
  Country: BR (occurrence: BR)
  Receive Date: 20140421
  Receipt Date: 20140421
  Transmission Date: 20141212
  Serious: Yes (Other)
  Sender: FDA-Public Use
  Company Number: PHHY2014BR047795

PATIENT
  Age: 77 Year
  Sex: Male

DRUGS (9)
  1. ONBREZ [Suspect]
     Indication: LUNG DISORDER
     Dosage: 300 MG, SPORADICALLY
  2. FORASEQ [Suspect]
     Indication: LUNG DISORDER
     Dosage: 1 DF (FORM 12 UG / BUDE 400 UG), DAILY
  3. ANCORON [Concomitant]
     Indication: ARRHYTHMIA
     Dosage: 1 DF (200 MG), DAILY
  4. GALVUS MET [Concomitant]
     Indication: DIABETES MELLITUS
     Dosage: 1 DF (METF 1000 MG, VILD 50 MG), DAILY
  5. AZUKON [Concomitant]
     Indication: DIABETES MELLITUS
     Dosage: 1 DF (300 MG), DAILY
  6. ASPIRIN PROTECT [Concomitant]
     Indication: THROMBOSIS PROPHYLAXIS
     Dosage: 1 DF (100 MG), DAILY
  7. PANTOPRAZOLE [Concomitant]
     Indication: GASTROINTESTINAL DISORDER
     Dosage: 1 DF (40 MG), DAILY
  8. COVERSYL PLUS                      /01421201/ [Concomitant]
     Dosage: 1 DF, DAILY
  9. LABIRIN [Concomitant]
     Indication: LABYRINTHITIS
     Dosage: 2 DF OF (24 MG), DAILY

REACTIONS (2)
  - Cataract [Unknown]
  - Wrong drug administered [Unknown]
